FAERS Safety Report 9848911 (Version 3)
Quarter: 2014Q1

REPORT INFORMATION
  Report Type: Report from Study
  Country: JP (occurrence: JP)
  Receive Date: 20140128
  Receipt Date: 20140205
  Transmission Date: 20141002
  Serious: Yes (Hospitalization)
  Sender: FDA-Public Use
  Company Number: JP-PFIZER INC-2013103392

PATIENT
  Age: 65 Year
  Sex: Female
  Weight: 44 kg

DRUGS (6)
  1. XALKORI [Suspect]
     Indication: NON-SMALL CELL LUNG CANCER
     Dosage: 250 MG, 2X/DAY
     Route: 048
     Dates: start: 20121206, end: 20130109
  2. XALKORI [Suspect]
     Dosage: 250 MG, 1X/DAY
     Route: 048
     Dates: start: 20130128
  3. NAUZELIN [Concomitant]
     Indication: VOMITING
     Dosage: 3 TIMES DAILY (DOSE UNKNOWN)
     Route: 048
     Dates: start: 20121208, end: 20130109
  4. NEXIUM [Concomitant]
     Indication: VOMITING
     Dosage: 20 MG, ONCE DAILY
     Route: 048
     Dates: start: 20121208
  5. MUCOSOLVAN [Concomitant]
     Dosage: 3 TIME DAILY (DOSE UNKNOWN)
     Route: 048
     Dates: start: 20121208, end: 20130109
  6. METEBANYL [Concomitant]
     Dosage: 2 MG, 2X/DAY
     Route: 048
     Dates: start: 20121208, end: 20130109

REACTIONS (2)
  - Hepatic function abnormal [Recovered/Resolved]
  - Vomiting [Recovered/Resolved with Sequelae]
